FAERS Safety Report 23539883 (Version 1)
Quarter: 2024Q1

REPORT INFORMATION
  Report Type: Spontaneous
  Country: GB (occurrence: GB)
  Receive Date: 20240219
  Receipt Date: 20240219
  Transmission Date: 20240410
  Serious: Yes (Life-Threatening, Hospitalization)
  Sender: FDA-Public Use
  Company Number: None

PATIENT
  Sex: Female
  Weight: 46 kg

DRUGS (2)
  1. METRONIDAZOLE [Suspect]
     Active Substance: METRONIDAZOLE
     Dosage: UNK
     Route: 065
  2. METRONIDAZOLE [Suspect]
     Active Substance: METRONIDAZOLE
     Dosage: 3M HEALTH CARE
     Route: 065

REACTIONS (2)
  - Psychotic disorder [Not Recovered/Not Resolved]
  - Medication error [Unknown]
